FAERS Safety Report 13287636 (Version 2)
Quarter: 2017Q2

REPORT INFORMATION
  Report Type: Spontaneous
  Country: IT (occurrence: IT)
  Receive Date: 20170302
  Receipt Date: 20170410
  Transmission Date: 20170830
  Serious: Yes (Hospitalization)
  Sender: FDA-Public Use
  Company Number: IT-PFIZER INC-2017091973

PATIENT
  Age: 73 Year
  Sex: Male
  Weight: 68 kg

DRUGS (1)
  1. LYRICA [Suspect]
     Active Substance: PREGABALIN
     Indication: SCIATICA
     Dosage: 1 G, 1X/DAY (FOR 1 DAY)
     Route: 048
     Dates: start: 20170228

REACTIONS (2)
  - Rash papular [Recovered/Resolved with Sequelae]
  - Local swelling [Recovered/Resolved with Sequelae]

NARRATIVE: CASE EVENT DATE: 20170228
